FAERS Safety Report 14132974 (Version 2)
Quarter: 2018Q1

REPORT INFORMATION
  Report Type: Spontaneous
  Country: JP (occurrence: JP)
  Receive Date: 20171027
  Receipt Date: 20180214
  Transmission Date: 20180508
  Serious: Yes (Hospitalization, Other)
  Sender: FDA-Public Use
  Company Number: JP-CIPLA LTD.-2017JP18572

PATIENT

DRUGS (6)
  1. DOPAMINE [Interacting]
     Active Substance: DOPAMINE\DOPAMINE HYDROCHLORIDE
     Indication: SHOCK
     Dosage: 5 ?G/KG PER MINUTE
  2. NORADRENALINE                      /00127501/ [Interacting]
     Active Substance: NOREPINEPHRINE
     Dosage: 0.3 ?G/KG PER MINUTE,
  3. NORADRENALINE                      /00127501/ [Interacting]
     Active Substance: NOREPINEPHRINE
     Indication: SHOCK
     Dosage: 0.1 ?G/KG PER MINUTE
  4. DOPAMINE [Interacting]
     Active Substance: DOPAMINE\DOPAMINE HYDROCHLORIDE
     Dosage: 10 ?G/KG PER MINUTE
  5. DOBUTAMINE [Interacting]
     Active Substance: DOBUTAMINE\DOBUTAMINE HYDROCHLORIDE
     Indication: SHOCK
     Dosage: 5 ?G/KG, PER MINUTE
  6. RISPERIDONE. [Suspect]
     Active Substance: RISPERIDONE
     Indication: PRODUCT USED FOR UNKNOWN INDICATION
     Dosage: 150 MG, UNK
     Route: 048

REACTIONS (7)
  - Hypotension [Recovered/Resolved]
  - Drug interaction [Unknown]
  - Shock [Recovered/Resolved]
  - Drug level increased [Recovered/Resolved]
  - Intentional overdose [Unknown]
  - Suicide attempt [Unknown]
  - Coma [Recovered/Resolved]
